FAERS Safety Report 16197117 (Version 1)
Quarter: 2019Q2

REPORT INFORMATION
  Report Type: Spontaneous
  Country: US (occurrence: US)
  Receive Date: 20190412
  Receipt Date: 20190412
  Transmission Date: 20190711
  Serious: No
  Sender: FDA-Public Use
  Company Number: None

PATIENT
  Age: 60 Year
  Sex: Female
  Weight: 81 kg

DRUGS (1)
  1. METOPROTOL TARTRATE 25 MG [Suspect]
     Active Substance: METOPROLOL TARTRATE

REACTIONS (2)
  - Product commingling [None]
  - Product label issue [None]

NARRATIVE: CASE EVENT DATE: 20190412
